FAERS Safety Report 9404206 (Version 1)
Quarter: 2013Q3

REPORT INFORMATION
  Report Type: Spontaneous
  Country: US (occurrence: None)
  Receive Date: 20130716
  Receipt Date: 20130716
  Transmission Date: 20140515
  Serious: No
  Sender: FDA-Public Use
  Company Number: None

PATIENT
  Age: 83 Year
  Sex: Female
  Weight: 56.7 kg

DRUGS (19)
  1. XERALTO [Suspect]
     Indication: ANTICOAGULANT THERAPY
     Dosage: MY DOCTOR GAVE ME A ^SAMPLE^ PACKAGE, TO TRY FIRST.?ONCE DAILY PO
     Route: 048
     Dates: start: 2012, end: 20120619
  2. XERALTO [Suspect]
     Indication: ATRIAL FIBRILLATION
     Dosage: MY DOCTOR GAVE ME A ^SAMPLE^ PACKAGE, TO TRY FIRST.?ONCE DAILY PO
     Route: 048
     Dates: start: 2012, end: 20120619
  3. SYNTHROID [Concomitant]
  4. PLAVIX [Concomitant]
  5. PROTONIX [Concomitant]
  6. SOTALOL [Concomitant]
  7. LIPITOR [Concomitant]
  8. XANAX [Concomitant]
  9. NITROZLYEER [Concomitant]
  10. OXYGEN CONCENTRATOR 2% [Concomitant]
  11. ASPIRIN [Concomitant]
  12. TYLENOL [Concomitant]
  13. VITAMIN D3 [Concomitant]
  14. FISH OIL [Concomitant]
  15. COQ10 [Concomitant]
  16. MULTI-VITAMIN [Concomitant]
  17. MINERAL [Concomitant]
  18. CALCIUM W/MAGNESIUM [Concomitant]
  19. MECLIZINE [Concomitant]

REACTIONS (4)
  - Muscle spasms [None]
  - Nausea [None]
  - Blood pressure increased [None]
  - Palpitations [None]
